FAERS Safety Report 24848271 (Version 1)
Quarter: 2025Q1

REPORT INFORMATION
  Report Type: Spontaneous
  Country: US (occurrence: US)
  Receive Date: 20250116
  Receipt Date: 20250116
  Transmission Date: 20250409
  Serious: Yes (Death, Hospitalization, Other)
  Sender: Kenvue
  Company Number: US-JOHNSON + JOHNSON CONSUMER SERVICES EAME-20250103573

PATIENT
  Age: 23 Year
  Sex: Male

DRUGS (3)
  1. IBUPROFEN [Suspect]
     Active Substance: IBUPROFEN
     Indication: Product used for unknown indication
     Route: 048
  2. DIPHENHYDRAMINE HYDROCHLORIDE [Suspect]
     Active Substance: DIPHENHYDRAMINE HYDROCHLORIDE
     Indication: Product used for unknown indication
     Route: 048
  3. METHYL ALCOHOL [Suspect]
     Active Substance: METHYL ALCOHOL
     Indication: Product used for unknown indication
     Route: 048

REACTIONS (2)
  - Completed suicide [Fatal]
  - Toxicity to various agents [Fatal]
